FAERS Safety Report 6545958-X (Version None)
Quarter: 2010Q1

REPORT INFORMATION
  Report Type: 
  Country: None (occurrence: None)
  Receive Date: 20100121
  Receipt Date: 20100118
  Transmission Date: 20100710
  Serious: Yes (Hospitalization)
  Sender: FDA-Public Use
  Company Number: ES-MERCK-1001ESP00016

PATIENT
  Age: 82 Year
  Sex: Male

DRUGS (6)
  1. MODURETIC 5-50 [Suspect]
     Indication: HYPERTENSION
     Route: 065
     Dates: start: 20080101
  2. ASPIRIN [Concomitant]
     Indication: PROPHYLAXIS
     Route: 065
     Dates: start: 20080101
  3. SPIRONOLACTONE [Suspect]
     Indication: HYPERTENSION
     Route: 065
     Dates: start: 20080101
  4. ATENOLOL [Concomitant]
     Indication: MYOCARDIAL ISCHAEMIA
     Route: 065
     Dates: start: 20080101
  5. AMIODARONE HYDROCHLORIDE [Concomitant]
     Indication: ATRIAL FIBRILLATION
     Route: 065
     Dates: start: 20080101
  6. ISOSORBIDE MONONITRATE [Concomitant]
     Indication: MYOCARDIAL ISCHAEMIA
     Route: 065
     Dates: start: 20080101

REACTIONS (2)
  - DRUG INTERACTION [None]
  - HYPONATRAEMIA [None]
